FAERS Safety Report 6650426-0 (Version None)
Quarter: 2010Q1

REPORT INFORMATION
  Report Type: 
  Country: None (occurrence: None)
  Receive Date: 20100322
  Receipt Date: 20100309
  Transmission Date: 20100710
  Serious: Yes (Hospitalization, Other)
  Sender: FDA-Public Use
  Company Number: 8040387

PATIENT
  Sex: Female
  Weight: 49.4 kg

DRUGS (3)
  1. CERTOLIZUMAB PEGOL (CDP870) [Suspect]
     Indication: CROHN'S DISEASE
     Dosage: (400 MG 1X/2 WEEKS, - NR OF DOSES :3 SUBCUTANEOUS), (SUBCUTANEOUS), (SUBCUTANEOUS)
     Route: 058
     Dates: start: 20070613, end: 20070101
  2. CERTOLIZUMAB PEGOL (CDP870) [Suspect]
     Indication: CROHN'S DISEASE
     Dosage: (400 MG 1X/2 WEEKS, - NR OF DOSES :3 SUBCUTANEOUS), (SUBCUTANEOUS), (SUBCUTANEOUS)
     Route: 058
     Dates: end: 20090225
  3. CERTOLIZUMAB PEGOL (CDP870) [Suspect]
     Indication: CROHN'S DISEASE
     Dosage: (400 MG 1X/2 WEEKS, - NR OF DOSES :3 SUBCUTANEOUS), (SUBCUTANEOUS), (SUBCUTANEOUS)
     Route: 058
     Dates: start: 20070101

REACTIONS (4)
  - CONDITION AGGRAVATED [None]
  - CROHN'S DISEASE [None]
  - FUSOBACTERIUM INFECTION [None]
  - GASTROINTESTINAL MUCOSAL DISORDER [None]
